FAERS Safety Report 14162318 (Version 3)
Quarter: 2018Q1

REPORT INFORMATION
  Report Type: Report from Study
  Country: US (occurrence: US)
  Receive Date: 20171106
  Receipt Date: 20180120
  Transmission Date: 20180508
  Serious: No
  Sender: FDA-Public Use
  Company Number: PHEH2017US035577

PATIENT
  Age: 63 Year
  Sex: Female
  Weight: 88.4 kg

DRUGS (1)
  1. GLATOPA [Suspect]
     Active Substance: GLATIRAMER ACETATE
     Indication: MULTIPLE SCLEROSIS
     Dosage: 20 MG, UNK
     Route: 058
     Dates: start: 20171009, end: 20171023

REACTIONS (5)
  - Urticaria [Recovered/Resolved]
  - Drug hypersensitivity [Unknown]
  - Gait disturbance [Recovered/Resolved]
  - Pruritus [Recovered/Resolved]
  - Device use issue [Unknown]

NARRATIVE: CASE EVENT DATE: 20171009
